FAERS Safety Report 26108442 (Version 1)
Quarter: 2025Q4

REPORT INFORMATION
  Report Type: Spontaneous
  Country: US (occurrence: None)
  Receive Date: 20251129
  Receipt Date: 20251129
  Transmission Date: 20260118
  Serious: Yes (Life-Threatening, Hospitalization, Other)
  Sender: FDA-CTU
  Company Number: None

PATIENT

DRUGS (1)
  1. ZOLEDRONIC ACID [Suspect]
     Active Substance: ZOLEDRONIC ACID
     Dates: start: 20251117, end: 20251117

REACTIONS (12)
  - Nausea [None]
  - Vomiting [None]
  - Mental status changes [None]
  - Abnormal behaviour [None]
  - Lethargy [None]
  - Blood pressure increased [None]
  - Heart rate increased [None]
  - Body temperature increased [None]
  - Acute kidney injury [None]
  - Hypocalcaemia [None]
  - Hypomagnesaemia [None]
  - Hypophosphataemia [None]

NARRATIVE: CASE EVENT DATE: 20251117
